FAERS Safety Report 6719716-7 (Version None)
Quarter: 2010Q2

REPORT INFORMATION
  Report Type: 
  Country: None (occurrence: None)
  Receive Date: 20100511
  Receipt Date: 20100428
  Transmission Date: 20101027
  Serious: Yes (Hospitalization)
  Sender: FDA-Public Use
  Company Number: PHHY2010CH27010

PATIENT
  Age: 39 Year
  Sex: Female

DRUGS (3)
  1. VOLTAREN [Suspect]
     Indication: ARTHRITIS ENTEROPATHIC
     Dosage: UNK
     Route: 048
     Dates: start: 20100115, end: 20100209
  2. PARACETAMOL [Suspect]
     Indication: ARTHRITIS ENTEROPATHIC
     Dosage: 4G/DAY
     Route: 048
     Dates: start: 20100115, end: 20100209
  3. SALAZOPYRIN [Suspect]
     Indication: ARTHRITIS ENTEROPATHIC
     Dosage: 3G/DAY
     Dates: start: 20100115, end: 20100209

REACTIONS (6)
  - ACUTE RESPIRATORY DISTRESS SYNDROME [None]
  - BLISTER [None]
  - MULTI-ORGAN FAILURE [None]
  - PYREXIA [None]
  - RASH GENERALISED [None]
  - TOXIC EPIDERMAL NECROLYSIS [None]
